FAERS Safety Report 8205552-1 (Version None)
Quarter: 2012Q1

REPORT INFORMATION
  Report Type: 
  Country: None (occurrence: None)
  Receive Date: 20120313
  Receipt Date: 20120228
  Transmission Date: 20120608
  Serious: Yes (Other)
  Sender: FDA-Public Use
  Company Number: FR-ELI_LILLY_AND_COMPANY-FR201101003995

PATIENT
  Age: 27 Year
  Sex: Male
  Weight: 75 kg

DRUGS (4)
  1. NOZINAN [Concomitant]
     Indication: SEDATION
     Dosage: 300 MG, UNK
     Dates: start: 20101125
  2. IMOVANE [Concomitant]
     Indication: HYPNOTHERAPY
     Dosage: 7.5 MG, UNK
     Dates: start: 20091016
  3. ZYPREXA [Suspect]
     Indication: HALLUCINATION
     Dosage: 30 MG, QD
     Route: 048
     Dates: start: 20090318, end: 20110606
  4. CLONAZEPAM [Concomitant]
     Dosage: 6 MG, UNK
     Dates: start: 20090319

REACTIONS (3)
  - HAEMATEMESIS [None]
  - OVERDOSE [None]
  - OESOPHAGEAL ULCER [None]
